FAERS Safety Report 10515158 (Version 2)
Quarter: 2014Q4

REPORT INFORMATION
  Report Type: Spontaneous
  Country: PL (occurrence: PL)
  Receive Date: 20141014
  Receipt Date: 20141031
  Transmission Date: 20150528
  Serious: Yes (Death, Other)
  Sender: FDA-Public Use
  Company Number: PHHY2014PL132810

PATIENT
  Sex: Female
  Weight: 84 kg

DRUGS (5)
  1. ECALTA [Concomitant]
     Active Substance: ANIDULAFUNGIN
     Indication: PRODUCT USED FOR UNKNOWN INDICATION
     Dosage: 100 MG, ONCE A DAY
     Route: 042
     Dates: start: 20140921
  2. ZYVOXID [Concomitant]
     Active Substance: LINEZOLID
     Indication: PRODUCT USED FOR UNKNOWN INDICATION
     Dosage: 600 MG, BID
     Route: 042
     Dates: start: 20140921
  3. EXJADE [Suspect]
     Active Substance: DEFERASIROX
     Indication: IRON OVERLOAD
     Dosage: UNK
     Route: 065
     Dates: start: 20140731
  4. MERONEM [Concomitant]
     Active Substance: MEROPENEM
     Indication: PRODUCT USED FOR UNKNOWN INDICATION
     Dosage: 1 G, BID
     Route: 042
     Dates: start: 20140920
  5. CYMEVENE [Concomitant]
     Active Substance: GANCICLOVIR
     Indication: PRODUCT USED FOR UNKNOWN INDICATION
     Dosage: 400 MG, ONCE A DAY
     Route: 042
     Dates: start: 20140828, end: 20140919

REACTIONS (28)
  - Bilirubin conjugated increased [Unknown]
  - Malaise [Unknown]
  - Decreased appetite [Unknown]
  - Post procedural complication [Fatal]
  - Cytomegalovirus infection [Unknown]
  - Hepatorenal syndrome [Unknown]
  - Altered state of consciousness [Unknown]
  - Confusional state [Unknown]
  - Blood creatinine increased [Unknown]
  - Tremor [Unknown]
  - Asthenia [Unknown]
  - Nausea [Unknown]
  - Pancytopenia [Unknown]
  - Blood bilirubin increased [Unknown]
  - Coagulopathy [Unknown]
  - Hypoproteinaemia [Unknown]
  - Graft versus host disease [Unknown]
  - Throat tightness [Unknown]
  - Pyrexia [Unknown]
  - Gamma-glutamyltransferase increased [Unknown]
  - Hypoalbuminaemia [Unknown]
  - C-reactive protein increased [Unknown]
  - Lymphoid tissue hyperplasia [Unknown]
  - Post transplant lymphoproliferative disorder [Fatal]
  - Anxiety [Unknown]
  - Hepatorenal failure [Fatal]
  - Blood alkaline phosphatase increased [Unknown]
  - Ammonia increased [Unknown]
